FAERS Safety Report 5605598-3 (Version None)
Quarter: 2008Q1

REPORT INFORMATION
  Report Type: 
  Country: None (occurrence: None)
  Receive Date: 20080124
  Receipt Date: 20080110
  Transmission Date: 20080703
  Serious: Yes (Other)
  Sender: FDA-Public Use
  Company Number: STI-2008-00130

PATIENT
  Sex: Female

DRUGS (1)
  1. 516 CLINDOXYL GEL (CLINDAMYCIN + BENZOYL PEROXIDE) (BENZOYL PEROXIDE W [Suspect]
     Dosage: TOPICAL
     Route: 061

REACTIONS (1)
  - HAEMATOCHEZIA [None]
